FAERS Safety Report 9033265 (Version 1)
Quarter: 2013Q1

REPORT INFORMATION
  Report Type: Spontaneous
  Country: US (occurrence: US)
  Receive Date: 20130128
  Receipt Date: 20130128
  Transmission Date: 20140127
  Serious: Yes (Death)
  Sender: FDA-Public Use
  Company Number: PHHY2013US007399

PATIENT
  Age: 49 Year
  Sex: Male

DRUGS (1)
  1. VALPROIC ACID [Suspect]

REACTIONS (2)
  - Completed suicide [Fatal]
  - Drug level increased [Unknown]
